FAERS Safety Report 14794033 (Version 4)
Quarter: 2018Q2

REPORT INFORMATION
  Report Type: Spontaneous
  Country: CA (occurrence: CA)
  Receive Date: 20180423
  Receipt Date: 20180618
  Transmission Date: 20180711
  Serious: Yes (Hospitalization, Other)
  Sender: FDA-Public Use
  Company Number: CA-CELLTRION INC.-2018CA019314

PATIENT

DRUGS (12)
  1. INFLECTRA [Suspect]
     Active Substance: INFLIXIMAB-DYYB
     Indication: CROHN^S DISEASE
     Dosage: 320 MG, CYCLIC, EVERY 2,6 WEEKS, THEN EVERY 8 WEEKS
     Route: 042
     Dates: start: 20171209
  2. SYNTHROID [Concomitant]
     Active Substance: LEVOTHYROXINE SODIUM
     Dosage: UNK
  3. CALCIUM [Concomitant]
     Active Substance: CALCIUM
     Dosage: UNK
  4. PREDNISONE. [Concomitant]
     Active Substance: PREDNISONE
     Dosage: UNK
  5. AZATHIOPRINE. [Concomitant]
     Active Substance: AZATHIOPRINE
     Dosage: UNK
  6. INFLECTRA [Suspect]
     Active Substance: INFLIXIMAB-DYYB
     Dosage: 320 MG, CYCLIC, EVERY 2,6 WEEKS, THEN EVERY 8 WEEKS
     Route: 042
     Dates: start: 20180316
  7. MEZAVANT [Concomitant]
     Active Substance: MESALAMINE
     Dosage: UNK
  8. ACETAMINOPHEN + COD. PHOSP. [Suspect]
     Active Substance: ACETAMINOPHEN\CODEINE PHOSPHATE
     Dosage: UNK
     Dates: start: 20180608
  9. DIPHENHYDRAMINE. [Suspect]
     Active Substance: DIPHENHYDRAMINE
     Dosage: UNK
     Dates: start: 20180608
  10. INFLECTRA [Suspect]
     Active Substance: INFLIXIMAB-DYYB
     Dosage: 10 MG/KG, (EVERY 4 WEEKS)
     Dates: start: 20180511
  11. INFLECTRA [Suspect]
     Active Substance: INFLIXIMAB-DYYB
     Dosage: 10 MG/KG, (EVERY 4 WEEKS)
     Dates: start: 20180608
  12. INFLECTRA [Suspect]
     Active Substance: INFLIXIMAB-DYYB
     Dosage: 320 MG, CYCLIC, EVERY 2,6 WEEKS, THEN EVERY 8 WEEKS
     Route: 042
     Dates: start: 20180316

REACTIONS (8)
  - Rectal haemorrhage [Unknown]
  - Drug ineffective [Not Recovered/Not Resolved]
  - Proctalgia [Unknown]
  - Condition aggravated [Unknown]
  - Off label use [Unknown]
  - Blood pressure fluctuation [Recovered/Resolved]
  - Expired product administered [Unknown]
  - Dizziness [Recovered/Resolved]

NARRATIVE: CASE EVENT DATE: 20180608
